FAERS Safety Report 7779191-0 (Version None)
Quarter: 2011Q3

REPORT INFORMATION
  Report Type: 
  Country: None (occurrence: None)
  Receive Date: 20110926
  Receipt Date: 20110921
  Transmission Date: 20111222
  Serious: Yes (Life-Threatening)
  Sender: FDA-Public Use
  Company Number: US-ABBOTT-11P-163-0857594-00

PATIENT
  Sex: Female

DRUGS (2)
  1. BIAXIN [Suspect]
     Indication: HELICOBACTER INFECTION
  2. PREVPAC [Suspect]
     Indication: HELICOBACTER INFECTION

REACTIONS (5)
  - HAEMOLYSIS [None]
  - HAEMATOCRIT DECREASED [None]
  - ASTHENIA [None]
  - TACHYCARDIA [None]
  - FATIGUE [None]
